FAERS Safety Report 23993279 (Version 1)
Quarter: 2024Q2

REPORT INFORMATION
  Report Type: Spontaneous
  Country: US (occurrence: None)
  Receive Date: 20240620
  Receipt Date: 20240620
  Transmission Date: 20240716
  Serious: Yes (Life-Threatening, Hospitalization)
  Sender: FDA-Public Use
  Company Number: US-Harman-000060

PATIENT
  Age: 15 Year
  Sex: Male

DRUGS (8)
  1. ALLOPURINOL [Suspect]
     Active Substance: ALLOPURINOL
     Indication: Tumour lysis syndrome
  2. DEXAMETHASONE [Concomitant]
     Active Substance: DEXAMETHASONE
     Indication: Acute lymphocytic leukaemia
  3. VINCRISTINE [Concomitant]
     Active Substance: VINCRISTINE
     Indication: Acute lymphocytic leukaemia
  4. RASBURICASE [Concomitant]
     Active Substance: RASBURICASE
     Indication: Blood uric acid abnormal
     Dosage: ON DAY 1
  5. TAMSULOSIN [Concomitant]
     Active Substance: TAMSULOSIN
     Indication: Renal lithiasis prophylaxis
  6. HYDROCHLOROTHIAZIDE [Concomitant]
     Active Substance: HYDROCHLOROTHIAZIDE
     Indication: Renal lithiasis prophylaxis
     Dosage: 500 MG EVERY 12 H ENTERALLY
  7. CYTARABINE [Concomitant]
     Active Substance: CYTARABINE
     Route: 037
  8. DAUNORUBICIN [Concomitant]
     Active Substance: DAUNORUBICIN

REACTIONS (2)
  - Nephrolithiasis [Recovered/Resolved]
  - Acute kidney injury [Recovered/Resolved]
